FAERS Safety Report 8027561-8 (Version None)
Quarter: 2012Q1

REPORT INFORMATION
  Report Type: 
  Country: None (occurrence: None)
  Receive Date: 20120106
  Receipt Date: 20120102
  Transmission Date: 20120608
  Serious: Yes (Hospitalization)
  Sender: FDA-Public Use
  Company Number: DE-JNJFOC-20120100145

PATIENT
  Sex: Male
  Weight: 85 kg

DRUGS (4)
  1. MIRTAZAPINE [Concomitant]
     Indication: DEPRESSION
     Route: 048
  2. TOPAMAX [Suspect]
     Indication: PARTIAL SEIZURES
     Route: 048
     Dates: start: 20080201, end: 20090323
  3. VIMPAT [Concomitant]
     Indication: PARTIAL SEIZURES
     Route: 048
  4. TRILEPTAL [Concomitant]
     Indication: PARTIAL SEIZURES
     Route: 065
     Dates: end: 20090330

REACTIONS (3)
  - HYPOKALAEMIA [None]
  - COGNITIVE DISORDER [None]
  - PSYCHOMOTOR RETARDATION [None]
